FAERS Safety Report 5317938-3 (Version None)
Quarter: 2007Q2

REPORT INFORMATION
  Report Type: 
  Country: None (occurrence: None)
  Receive Date: 20070507
  Receipt Date: 20070426
  Transmission Date: 20071010
  Serious: Yes (Hospitalization)
  Sender: FDA-Public Use
  Company Number: RO-ASTRAZENECA-2006SE06232

PATIENT
  Age: 24327 Day
  Sex: Male

DRUGS (1)
  1. QUETIAPINE FUMARATE [Suspect]
     Indication: BIPOLAR I DISORDER
     Route: 048
     Dates: start: 20060625, end: 20061113

REACTIONS (1)
  - GASTRODUODENITIS [None]
